FAERS Safety Report 7005530-4 (Version None)
Quarter: 2010Q3

REPORT INFORMATION
  Report Type: 
  Country: None (occurrence: None)
  Receive Date: 20100902
  Receipt Date: 20100601
  Transmission Date: 20110219
  Serious: Yes (Hospitalization, Disabling, Other)
  Sender: FDA-Public Use
  Company Number: 234132USA

PATIENT
  Sex: Female

DRUGS (1)
  1. METOCLOPRAMIDE [Suspect]
     Indication: NAUSEA
     Dosage: (10 MG)
     Dates: start: 20080401, end: 20090601

REACTIONS (9)
  - AKATHISIA [None]
  - DYSKINESIA [None]
  - DYSPNOEA [None]
  - GAIT DISTURBANCE [None]
  - MASTICATION DISORDER [None]
  - MUSCLE SPASMS [None]
  - SPEECH DISORDER [None]
  - STEREOTYPY [None]
  - TARDIVE DYSKINESIA [None]
